FAERS Safety Report 16565382 (Version 1)
Quarter: 2019Q3

REPORT INFORMATION
  Report Type: Spontaneous
  Country: US (occurrence: US)
  Receive Date: 20190712
  Receipt Date: 20190712
  Transmission Date: 20191004
  Serious: Yes (Hospitalization, Other)
  Sender: FDA-Public Use
  Company Number: US-MYLANLABS-2019M1061429

PATIENT
  Age: 63 Year
  Sex: Male
  Weight: 96 kg

DRUGS (1)
  1. ABIRATERONE. [Suspect]
     Active Substance: ABIRATERONE ACETATE
     Indication: PROSTATE CANCER
     Dosage: 250 MILLIGRAM
     Route: 048
     Dates: start: 201812

REACTIONS (2)
  - Blood creatinine increased [Recovering/Resolving]
  - Urine flow decreased [Recovering/Resolving]

NARRATIVE: CASE EVENT DATE: 201905
